FAERS Safety Report 18598390 (Version 2)
Quarter: 2021Q1

REPORT INFORMATION
  Report Type: Report from Study
  Country: JP (occurrence: JP)
  Receive Date: 20201210
  Receipt Date: 20210211
  Transmission Date: 20210419
  Serious: Yes (Other)
  Sender: FDA-Public Use
  Company Number: JP-CELLTRION INC.-2020JP024833

PATIENT

DRUGS (5)
  1. MESALAZINE [Concomitant]
     Active Substance: MESALAMINE
     Dosage: 2000 MILLIGRAM/DAY
     Route: 048
     Dates: start: 20200719
  2. CT?P13 [Suspect]
     Active Substance: INFLIXIMAB-DYYB
     Indication: CROHN^S DISEASE
     Dosage: 580 MG (WEIGHT: 58.4KG)
     Route: 041
     Dates: start: 20181111, end: 20181111
  3. MESALAZINE [Concomitant]
     Active Substance: MESALAMINE
     Indication: COLITIS ULCERATIVE
     Dosage: 3000 MILLIGRAM/DAY
     Route: 048
     Dates: end: 20200718
  4. AZATHIOPRINE. [Concomitant]
     Active Substance: AZATHIOPRINE
     Dosage: 50 MILLIGRAM/DAY
     Route: 048
     Dates: start: 201203
  5. CT?P13 [Suspect]
     Active Substance: INFLIXIMAB-DYYB
     Dosage: 560 MG (WEIGHT: 56.0KG)
     Route: 041
     Dates: start: 20191015, end: 20191015

REACTIONS (9)
  - Vertigo [Recovered/Resolved]
  - Overdose [Unknown]
  - Tinea pedis [Not Recovered/Not Resolved]
  - Product use issue [Unknown]
  - Bronchitis [Recovered/Resolved]
  - Bacterial vulvovaginitis [Recovered/Resolved]
  - Intestinal obstruction [Recovered/Resolved]
  - Subileus [Recovered/Resolved]
  - Nasopharyngitis [Recovered/Resolved]

NARRATIVE: CASE EVENT DATE: 20190211
